FAERS Safety Report 11260735 (Version 2)
Quarter: 2015Q4

REPORT INFORMATION
  Report Type: Spontaneous
  Country: US (occurrence: US)
  Receive Date: 20150710
  Receipt Date: 20151006
  Transmission Date: 20160304
  Serious: Yes (Hospitalization, Other)
  Sender: FDA-Public Use
  Company Number: US-DSJP-DSU-2015-121206

PATIENT

DRUGS (3)
  1. AZOR [Suspect]
     Active Substance: AMLODIPINE BESYLATE\OLMESARTAN MEDOXOMIL
     Indication: HYPERTENSION
     Dosage: 10/40 MG, QD
     Route: 048
     Dates: start: 20101214, end: 20120703
  2. BENICAR HCT [Suspect]
     Active Substance: HYDROCHLOROTHIAZIDE\OLMESARTAN MEDOXOMIL
     Indication: HYPERTENSION
     Dosage: 40 MG, QD
     Route: 048
     Dates: end: 20120627
  3. HYDROCHLOROTHIAZIDE. [Concomitant]
     Active Substance: HYDROCHLOROTHIAZIDE
     Indication: PRODUCT USED FOR UNKNOWN INDICATION
     Dosage: UNK
     Dates: end: 20120613

REACTIONS (38)
  - Small intestinal obstruction [Unknown]
  - Blood calcium decreased [Unknown]
  - Metaplasia [Unknown]
  - Haematochezia [None]
  - Blood potassium decreased [Unknown]
  - Arteriovenous malformation [Unknown]
  - Duodenitis [Unknown]
  - Urinary incontinence [Unknown]
  - Rectal haemorrhage [Unknown]
  - Dehydration [Unknown]
  - Blood albumin decreased [Unknown]
  - Large intestine polyp [Recovered/Resolved]
  - Haemorrhoids [Unknown]
  - Haemoglobin decreased [Unknown]
  - Impaired gastric emptying [Recovering/Resolving]
  - Coeliac disease [Recovered/Resolved]
  - Malabsorption [Recovered/Resolved]
  - Renal cyst [Unknown]
  - Diverticulum intestinal [Unknown]
  - Protein total decreased [Unknown]
  - Faecal incontinence [Unknown]
  - Gastroenteritis [Unknown]
  - Large intestine polyp [Unknown]
  - Metabolic acidosis [Unknown]
  - Gastrointestinal oedema [Unknown]
  - Oesophagitis [Unknown]
  - Gastric polyps [Unknown]
  - Colitis [Unknown]
  - Acute kidney injury [Unknown]
  - Gastrointestinal angiodysplasia [Unknown]
  - Blood magnesium decreased [Unknown]
  - Nephrectomy [Unknown]
  - Gastrointestinal mucosa hyperaemia [Unknown]
  - Constipation [Unknown]
  - Gastritis [Unknown]
  - Ageusia [Unknown]
  - Barrett^s oesophagus [Unknown]
  - Asthenia [Unknown]

NARRATIVE: CASE EVENT DATE: 20110323
